FAERS Safety Report 22610248 (Version 1)
Quarter: 2023Q2

REPORT INFORMATION
  Report Type: Spontaneous
  Country: TH (occurrence: TH)
  Receive Date: 20230616
  Receipt Date: 20230616
  Transmission Date: 20230722
  Serious: Yes (Death)
  Sender: FDA-Public Use
  Company Number: TH-BAYER-2023A079357

PATIENT
  Age: 7 Month
  Sex: Male

DRUGS (3)
  1. CIPROFLOXACIN [Suspect]
     Active Substance: CIPROFLOXACIN
     Indication: Salmonellosis
  2. MEROPENEM [Concomitant]
     Active Substance: MEROPENEM
     Indication: Salmonellosis
  3. VANCOMYCIN [Concomitant]
     Active Substance: VANCOMYCIN
     Indication: Salmonellosis

REACTIONS (3)
  - Disseminated intravascular coagulation [Fatal]
  - Diabetes insipidus [Fatal]
  - Drug ineffective [Fatal]
